FAERS Safety Report 22244294 (Version 1)
Quarter: 2023Q2

REPORT INFORMATION
  Report Type: Spontaneous
  Country: FR (occurrence: FR)
  Receive Date: 20230424
  Receipt Date: 20230424
  Transmission Date: 20230722
  Serious: Yes (Other)
  Sender: FDA-Public Use
  Company Number: None

PATIENT
  Age: 69 Year
  Sex: Female

DRUGS (1)
  1. OPDIVO [Suspect]
     Active Substance: NIVOLUMAB
     Indication: Malignant melanoma
     Route: 042
     Dates: start: 20200609, end: 20210422

REACTIONS (3)
  - Lichen planus [Recovered/Resolved]
  - Pericardial effusion [Recovering/Resolving]
  - Pulmonary granuloma [Unknown]

NARRATIVE: CASE EVENT DATE: 20200616
